FAERS Safety Report 6646879-4 (Version None)
Quarter: 2010Q1

REPORT INFORMATION
  Report Type: 
  Country: None (occurrence: None)
  Receive Date: 20100323
  Receipt Date: 20100309
  Transmission Date: 20100710
  Serious: Yes (Hospitalization)
  Sender: FDA-Public Use
  Company Number: DE-MYLANLABS-2010S1003852

PATIENT
  Age: 14 Year
  Sex: Female

DRUGS (6)
  1. DEXAMETHASONE [Suspect]
     Indication: ACUTE LYMPHOCYTIC LEUKAEMIA
     Dosage: 10 MG/M2/DAY FOR 30 DAYS
  2. METHOTREXATE [Suspect]
     Indication: ACUTE LYMPHOCYTIC LEUKAEMIA
  3. VINCRISTINE [Suspect]
     Indication: ACUTE LYMPHOCYTIC LEUKAEMIA
  4. PANTOPRAZOLE [Interacting]
  5. POSACONAZOLE [Interacting]
     Indication: FUNGAL INFECTION
     Dosage: 3 X 200MG TO 4 X 300MG
  6. FLUCONAZOLE [Concomitant]
     Indication: ANTIFUNGAL PROPHYLAXIS

REACTIONS (10)
  - ANTITHROMBIN III DECREASED [None]
  - DRUG INTERACTION [None]
  - DRUG LEVEL DECREASED [None]
  - FEBRILE NEUTROPENIA [None]
  - FUNGAL INFECTION [None]
  - HYPOCOAGULABLE STATE [None]
  - LIVER DISORDER [None]
  - MUCOSAL INFLAMMATION [None]
  - MYOPATHY [None]
  - NEUROPATHY PERIPHERAL [None]
